FAERS Safety Report 4558613-2 (Version None)
Quarter: 2005Q1

REPORT INFORMATION
  Report Type: 
  Country: None (occurrence: None)
  Receive Date: 20050121
  Receipt Date: 20041123
  Transmission Date: 20050727
  Serious: Yes (Death, Life-Threatening, Other)
  Sender: FDA-Public Use
  Company Number: FR-NOVOPROD-240711

PATIENT
  Age: 53 Year
  Sex: Male
  Weight: 50 kg

DRUGS (6)
  1. NOVOSEVEN [Suspect]
     Indication: UPPER GASTROINTESTINAL HAEMORRHAGE
     Dosage: 300 UG/KG, UNK
     Route: 042
     Dates: start: 20041122, end: 20041123
  2. SANDOSTATIN [Concomitant]
     Dosage: 50 UNK, QD
     Dates: start: 20041122, end: 20041122
  3. SANDOSTATIN [Concomitant]
     Dosage: 1.2 MG, QD
     Dates: start: 20041122
  4. OFLOCET [Concomitant]
     Dosage: 400 MG, QD
     Dates: start: 20041122
  5. ERYTHROMYCIN [Concomitant]
     Dosage: 250 MG, QD
     Dates: start: 20041123, end: 20041123
  6. AUGMENTIN '125' [Concomitant]
     Dosage: 3 G, QD
     Dates: start: 20041122

REACTIONS (5)
  - COMA [None]
  - EPILEPSY [None]
  - EPISTAXIS [None]
  - HEPATIC ENCEPHALOPATHY [None]
  - SEPTIC SHOCK [None]
